FAERS Safety Report 11661869 (Version 1)
Quarter: 2015Q4

REPORT INFORMATION
  Report Type: Spontaneous
  Country: JP (occurrence: JP)
  Receive Date: 20151026
  Receipt Date: 20151026
  Transmission Date: 20160304
  Serious: Yes (Death, Hospitalization, Other)
  Sender: FDA-Public Use
  Company Number: PHJP1997JP001312

PATIENT
  Age: 75 Year
  Sex: Male

DRUGS (2)
  1. VOLTAREN [Suspect]
     Active Substance: DICLOFENAC SODIUM
     Indication: CANCER PAIN
     Dosage: 200 MG, UNK
     Dates: start: 19970428
  2. MORPHINE [Concomitant]
     Active Substance: MORPHINE
     Indication: PRODUCT USED FOR UNKNOWN INDICATION
     Dosage: 7 MG, UNK
     Route: 058

REACTIONS (5)
  - Fibrin degradation products increased [Unknown]
  - Thrombocytopenia [Fatal]
  - Melaena [Unknown]
  - Neoplasm malignant [Fatal]
  - Haemoptysis [Unknown]

NARRATIVE: CASE EVENT DATE: 19970603
